FAERS Safety Report 8222916-0 (Version None)
Quarter: 2012Q1

REPORT INFORMATION
  Report Type: 
  Country: None (occurrence: None)
  Receive Date: 20120320
  Receipt Date: 20120312
  Transmission Date: 20120608
  Serious: Yes (Other)
  Sender: FDA-Public Use
  Company Number: PHHY2012SE022836

PATIENT
  Age: 53 Year
  Sex: Male

DRUGS (7)
  1. CLOZAPINE [Suspect]
  2. METOPROLOL SUCCINATE [Concomitant]
  3. CITALOPRAM HYDROBROMIDE [Concomitant]
  4. ASPIRIN [Concomitant]
  5. LORAZEPAM [Concomitant]
  6. CLOZAPINE [Suspect]
     Route: 048
  7. CLOZAPINE [Suspect]

REACTIONS (4)
  - FATIGUE [None]
  - HEART RATE INCREASED [None]
  - BLOOD PRESSURE INCREASED [None]
  - CATATONIA [None]
